FAERS Safety Report 22103077 (Version 1)
Quarter: 2023Q1

REPORT INFORMATION
  Report Type: Spontaneous
  Country: US (occurrence: US)
  Receive Date: 20230316
  Receipt Date: 20230316
  Transmission Date: 20230418
  Serious: No
  Sender: FDA-Public Use
  Company Number: US-JNJFOC-20230319248

PATIENT
  Age: 81 Year
  Sex: Female

DRUGS (1)
  1. WOMENS ROGAINE UNSCENTED [Suspect]
     Active Substance: MINOXIDIL
     Indication: Alopecia
     Dosage: ONCE EVERY OTHER DAY
     Route: 061
     Dates: start: 20230301

REACTIONS (4)
  - Inappropriate schedule of product administration [Unknown]
  - Wrong technique in product usage process [Unknown]
  - Product container issue [Unknown]
  - Product physical issue [Unknown]

NARRATIVE: CASE EVENT DATE: 20230301
